FAERS Safety Report 15424581 (Version 1)
Quarter: 2018Q4

REPORT INFORMATION
  Report Type: Spontaneous
  Country: None (occurrence: US)
  Receive Date: 20180925
  Receipt Date: 20180925
  Transmission Date: 20190204
  Serious: No
  Sender: FDA-Public Use
  Company Number: US-AKRON, INC.-2055314

PATIENT

DRUGS (1)
  1. AK-FLUOR [Suspect]
     Active Substance: FLUORESCEIN SODIUM
     Route: 042

REACTIONS (2)
  - Burning sensation [Recovered/Resolved]
  - Nausea [Recovered/Resolved]
